FAERS Safety Report 6783900-7 (Version None)
Quarter: 2010Q2

REPORT INFORMATION
  Report Type: 
  Country: None (occurrence: None)
  Receive Date: 20100622
  Receipt Date: 20100611
  Transmission Date: 20101027
  Serious: Yes (Other)
  Sender: FDA-Public Use
  Company Number: SE-JNJFOC-20100600973

PATIENT
  Sex: Male
  Weight: 105 kg

DRUGS (7)
  1. STELARA [Suspect]
     Indication: PSORIASIS
     Route: 058
  2. SELOKEN ZOC [Concomitant]
     Indication: HYPERTENSION
  3. LANTUS [Concomitant]
  4. NOVORAPID [Concomitant]
  5. KETOPROFEN [Concomitant]
  6. CIPRAMIL [Concomitant]
  7. ATARAX [Concomitant]

REACTIONS (4)
  - DIZZINESS [None]
  - HEADACHE [None]
  - HYPERTENSION [None]
  - NECK PAIN [None]
